FAERS Safety Report 23397823 (Version 1)
Quarter: 2024Q1

REPORT INFORMATION
  Report Type: Report from Study
  Country: CA (occurrence: CA)
  Receive Date: 20240112
  Receipt Date: 20240112
  Transmission Date: 20240410
  Serious: Yes (Other)
  Sender: FDA-Public Use
  Company Number: CA-UCBSA-2023044045

PATIENT
  Sex: Female

DRUGS (5)
  1. BIMEKIZUMAB [Interacting]
     Active Substance: BIMEKIZUMAB
     Indication: Ankylosing spondylitis
     Dosage: 160 MILLIGRAM, EV 4 WEEKS
     Route: 058
     Dates: start: 20230828, end: 2023
  2. BIMEKIZUMAB [Interacting]
     Active Substance: BIMEKIZUMAB
     Indication: Off label use
  3. AIMOVIG [Concomitant]
     Active Substance: ERENUMAB-AOOE
     Indication: Product used for unknown indication
     Dosage: UNK
  4. DICLOFENAC [Concomitant]
     Active Substance: DICLOFENAC
     Indication: Product used for unknown indication
     Dosage: UNK
  5. RINVOQ [Concomitant]
     Active Substance: UPADACITINIB
     Indication: Product used for unknown indication
     Dosage: UNK

REACTIONS (3)
  - Multiple sclerosis [Unknown]
  - Drug therapeutic incompatibility [Unknown]
  - Off label use [Unknown]

NARRATIVE: CASE EVENT DATE: 20230101
